FAERS Safety Report 6012745-0 (Version None)
Quarter: 2008Q4

REPORT INFORMATION
  Report Type: 
  Country: None (occurrence: None)
  Receive Date: 20081217
  Receipt Date: 20081203
  Transmission Date: 20090506
  Serious: Yes (Hospitalization)
  Sender: FDA-Public Use
  Company Number: A-NJ2008-22749

PATIENT
  Age: 60 Year
  Sex: Female
  Weight: 62.1 kg

DRUGS (17)
  1. TRACLEER [Suspect]
     Indication: PULMONARY HYPERTENSION
     Dosage: 62.5 MG, BID, ORAL
     Route: 048
     Dates: start: 20080628, end: 20081001
  2. ALTACE [Concomitant]
  3. ADVAIR (SALMETEROL XINAFOATE, FLUTICASONE PROPIONATE) [Concomitant]
  4. XANAX [Concomitant]
  5. NEXIUM (ESOMEPRAZOLE SODIUM) [Concomitant]
  6. PROVENTIL [Concomitant]
  7. TORSEMIDE [Concomitant]
  8. IRON (IRON) [Concomitant]
  9. PROMETHAZINE [Concomitant]
  10. DIGOXIN [Concomitant]
  11. COUMADIN [Concomitant]
  12. ESTRACE [Concomitant]
  13. KLOR-CON [Concomitant]
  14. ZAROXOLYN [Concomitant]
  15. LASIX [Concomitant]
  16. ATROVENT [Concomitant]
  17. PROTONIX [Concomitant]

REACTIONS (15)
  - ANAEMIA [None]
  - AZOTAEMIA [None]
  - BLOOD BILIRUBIN INCREASED [None]
  - BLOOD CREATININE INCREASED [None]
  - BLOOD PRESSURE INCREASED [None]
  - BLOOD UREA INCREASED [None]
  - BRONCHITIS [None]
  - CHRONIC OBSTRUCTIVE PULMONARY DISEASE [None]
  - DRUG LEVEL INCREASED [None]
  - FLUID RETENTION [None]
  - HEPATOMEGALY [None]
  - NORMOCHROMIC NORMOCYTIC ANAEMIA [None]
  - PITTING OEDEMA [None]
  - PNEUMONIA [None]
  - POSTNASAL DRIP [None]
